FAERS Safety Report 6249038-2 (Version None)
Quarter: 2009Q2

REPORT INFORMATION
  Report Type: 
  Country: None (occurrence: None)
  Receive Date: 20090629
  Receipt Date: 20090616
  Transmission Date: 20091009
  Serious: Yes (Other)
  Sender: FDA-Public Use
  Company Number: DE-JNJFOC-20090605341

PATIENT
  Age: 32 Year
  Sex: Male
  Weight: 81 kg

DRUGS (6)
  1. REMICADE [Suspect]
     Dosage: 5TH INFUSION
     Route: 042
  2. REMICADE [Suspect]
     Indication: BEHCET'S SYNDROME
     Dosage: 3 INFUSIONS ON UNSPECIFIED DATES: WEEK 2 AND WEEK 6
     Route: 042
  3. REMICADE [Suspect]
     Indication: SPONDYLITIS
     Route: 042
  4. ZYPREXA [Concomitant]
     Indication: SCHIZOPHRENIA
     Dosage: 1/4 PER DAY
  5. ZOPICLONE [Concomitant]
  6. PROMETHAZINE [Concomitant]

REACTIONS (5)
  - ANAPHYLACTIC REACTION [None]
  - CHEST PAIN [None]
  - INFUSION RELATED REACTION [None]
  - PALPITATIONS [None]
  - VERTIGO [None]
